FAERS Safety Report 17596955 (Version 1)
Quarter: 2020Q1

REPORT INFORMATION
  Report Type: Spontaneous
  Country: US (occurrence: US)
  Receive Date: 20200330
  Receipt Date: 20200330
  Transmission Date: 20200409
  Serious: No
  Sender: FDA-Public Use
  Company Number: US-GLAXOSMITHKLINE-US2020049330

PATIENT
  Sex: Male

DRUGS (1)
  1. ARNUITY ELLIPTA [Suspect]
     Active Substance: FLUTICASONE FUROATE
     Indication: MULTIPLE ALLERGIES
     Dosage: 1 PUFF(S), 1D
     Route: 055

REACTIONS (2)
  - Product dispensing error [Unknown]
  - Product use in unapproved indication [Unknown]
